FAERS Safety Report 5498705-7 (Version None)
Quarter: 2007Q4

REPORT INFORMATION
  Report Type: 
  Country: None (occurrence: None)
  Receive Date: 20071024
  Receipt Date: 20071024
  Transmission Date: 20080405
  Serious: Yes (Hospitalization)
  Sender: FDA-Public Use
  Company Number: None

PATIENT
  Age: 51 Year
  Sex: Male

DRUGS (2)
  1. WARFARIN SODIUM [Suspect]
     Indication: DEEP VEIN THROMBOSIS
     Dosage: 5MG EVERY DAY PO
     Route: 048
     Dates: start: 20070823
  2. FLUOXETINE [Suspect]
     Indication: DEPRESSION
     Dosage: 20MG EVERY DAY PO
     Route: 048
     Dates: start: 20071009

REACTIONS (3)
  - HAEMATOMA [None]
  - HAEMORRHAGE [None]
  - INTERNATIONAL NORMALISED RATIO INCREASED [None]
